FAERS Safety Report 8582642-5 (Version None)
Quarter: 2012Q3

REPORT INFORMATION
  Report Type: 
  Country: None (occurrence: None)
  Receive Date: 20120809
  Receipt Date: 20120801
  Transmission Date: 20120928
  Serious: Yes (Other)
  Sender: FDA-Public Use
  Company Number: US-CELGENEUS-163-21880-12080440

PATIENT
  Sex: Female
  Weight: 70.824 kg

DRUGS (3)
  1. REVLIMID [Suspect]
     Indication: MULTIPLE MYELOMA
     Dosage: 10 MILLIGRAM
     Route: 048
     Dates: start: 20101209
  2. VITAMIN B6 [Concomitant]
     Route: 065
  3. VITAMIN D [Concomitant]
     Route: 065

REACTIONS (4)
  - CARPAL TUNNEL SYNDROME [None]
  - BLISTER [None]
  - DERMATITIS CONTACT [None]
  - SKIN DISCOLOURATION [None]
